FAERS Safety Report 7286196 (Version 6)
Quarter: 2015Q1

REPORT INFORMATION
  Report Type: Report from Study
  Country: DE (occurrence: DE)
  Receive Date: 20100219
  Receipt Date: 20150209
  Transmission Date: 20150721
  Serious: Yes (Death, Hospitalization, Other)
  Sender: FDA-Public Use
  Company Number: PHHO2010DE02457

PATIENT
  Age: 75 Year
  Sex: Female
  Weight: 59.5 kg

DRUGS (2)
  1. SANDOSTATIN LAR DEPOT [Suspect]
     Active Substance: OCTREOTIDE ACETATE
     Indication: THYMOMA
     Dosage: 30 MG, EVERY 2 WEEKS
     Route: 030
     Dates: start: 20091120, end: 20091228
  2. PREDNISOLON [Suspect]
     Active Substance: PREDNISOLONE
     Indication: THYMOMA
     Dosage: 30 MG, UNK
     Route: 048
     Dates: start: 20091120

REACTIONS (15)
  - Pneumonia cytomegaloviral [Fatal]
  - Immunoglobulins decreased [Unknown]
  - Respiratory failure [Fatal]
  - Loss of consciousness [Recovered/Resolved]
  - Lung disorder [Fatal]
  - Listeria sepsis [Recovered/Resolved]
  - Paraneoplastic syndrome [Unknown]
  - Gastroenteritis norovirus [Unknown]
  - Pneumocystis jirovecii pneumonia [Fatal]
  - Meningitis listeria [Recovered/Resolved]
  - Pyrexia [Recovered/Resolved]
  - Malignant neoplasm progression [Unknown]
  - Pneumonia [Fatal]
  - Acute respiratory distress syndrome [Fatal]
  - Herpes simplex pneumonia [Fatal]

NARRATIVE: CASE EVENT DATE: 20100108
